FAERS Safety Report 5141797-5 (Version None)
Quarter: 2006Q4

REPORT INFORMATION
  Report Type: 
  Country: None (occurrence: None)
  Receive Date: 20061027
  Receipt Date: 20061016
  Transmission Date: 20070319
  Serious: Yes (Other)
  Sender: FDA-Public Use
  Company Number: 2006127059

PATIENT
  Sex: Female

DRUGS (2)
  1. CETIRIZINE HCL [Suspect]
  2. HYOSCINE HBR HYT [Concomitant]

REACTIONS (1)
  - ARTERIOSPASM CORONARY [None]
